FAERS Safety Report 11237417 (Version 1)
Quarter: 2015Q3

REPORT INFORMATION
  Report Type: Spontaneous
  Country: RS (occurrence: RS)
  Receive Date: 20150703
  Receipt Date: 20150703
  Transmission Date: 20151125
  Serious: Yes (Hospitalization)
  Sender: FDA-Public Use
  Company Number: RS-TEVA-574065ISR

PATIENT
  Age: 18 Year
  Sex: Female
  Weight: 53 kg

DRUGS (5)
  1. ETOPOSIDE. [Suspect]
     Active Substance: ETOPOSIDE
     Indication: OVARIAN CANCER
     Route: 042
     Dates: start: 20150610, end: 20150610
  2. LEMOD SOLU (METHYLPREDNISOLONE) [Concomitant]
  3. SYNOPEN (CHLOROPIRAMINE) [Concomitant]
  4. GRANISETRONE HYDROCHLORIDE [Concomitant]
     Indication: OVARIAN CANCER
     Route: 048
     Dates: start: 20150610, end: 20150610
  5. GRANISETRONE HYDROCHLORIDE [Concomitant]
     Indication: PREMEDICATION

REACTIONS (5)
  - Malaise [Recovered/Resolved]
  - Abdominal pain upper [Recovered/Resolved]
  - Nausea [Recovered/Resolved]
  - Retching [Recovered/Resolved]
  - Erythema [Recovered/Resolved]

NARRATIVE: CASE EVENT DATE: 20150610
